FAERS Safety Report 5240513-6 (Version None)
Quarter: 2007Q1

REPORT INFORMATION
  Report Type: 
  Country: None (occurrence: None)
  Receive Date: 20070219
  Receipt Date: 20070213
  Transmission Date: 20070707
  Serious: Yes (Other)
  Sender: FDA-Public Use
  Company Number: DE-GLAXOSMITHKLINE-D0052294A

PATIENT
  Age: 23 Year
  Sex: Female
  Weight: 58 kg

DRUGS (5)
  1. LAMICTAL [Suspect]
     Route: 048
  2. ADDERALL 10 [Suspect]
     Route: 048
  3. AMBIEN [Suspect]
     Route: 048
  4. TOPAMAX [Suspect]
     Route: 048
  5. VALIUM [Suspect]
     Route: 048

REACTIONS (4)
  - ASTHENIA [None]
  - DEPRESSED LEVEL OF CONSCIOUSNESS [None]
  - INTENTIONAL OVERDOSE [None]
  - SUICIDE ATTEMPT [None]
